FAERS Safety Report 11853486 (Version 1)
Quarter: 2015Q4

REPORT INFORMATION
  Report Type: Spontaneous
  Country: US (occurrence: US)
  Receive Date: 20151218
  Receipt Date: 20151218
  Transmission Date: 20160305
  Serious: Yes (Death, Other)
  Sender: FDA-Public Use
  Company Number: US-TAKEDA-TPA2013A03657

PATIENT

DRUGS (1)
  1. ACTOS [Suspect]
     Active Substance: PIOGLITAZONE HYDROCHLORIDE
     Indication: TYPE 2 DIABETES MELLITUS
     Route: 048
     Dates: start: 201006, end: 201204

REACTIONS (3)
  - Cardio-respiratory arrest [Fatal]
  - Metastatic carcinoma of the bladder [Fatal]
  - Failure to thrive [Fatal]

NARRATIVE: CASE EVENT DATE: 201201
